FAERS Safety Report 6308878-1 (Version None)
Quarter: 2009Q3

REPORT INFORMATION
  Report Type: 
  Country: None (occurrence: None)
  Receive Date: 20090813
  Receipt Date: 20090120
  Transmission Date: 20100115
  Serious: No
  Sender: FDA-Public Use
  Company Number: US-ALLERGAN-0900670US

PATIENT
  Age: 75 Year
  Sex: Male

DRUGS (5)
  1. COMBIGAN [Suspect]
     Indication: GLAUCOMA
     Route: 047
  2. LUMIGAN [Concomitant]
     Indication: GLAUCOMA
     Dosage: UNK, UNK
     Route: 047
  3. SIMVASTATIN [Concomitant]
  4. LISINOPRIL [Concomitant]
  5. UROXATRAL [Concomitant]

REACTIONS (2)
  - PHOTOPHOBIA [None]
  - VISION BLURRED [None]
